FAERS Safety Report 24618829 (Version 1)
Quarter: 2024Q4

REPORT INFORMATION
  Report Type: Spontaneous
  Country: US (occurrence: None)
  Receive Date: 20241113
  Receipt Date: 20241113
  Transmission Date: 20250115
  Serious: Yes (unspecified)
  Sender: Public
  Company Number: None

PATIENT
  Age: 28 Year
  Sex: Male
  Weight: 72 kg

DRUGS (6)
  1. MOXIFLOXACIN [Suspect]
     Active Substance: MOXIFLOXACIN
     Dates: start: 20241030, end: 20241106
  2. VITAMINS [Concomitant]
     Active Substance: VITAMINS
  3. vitamin D [Concomitant]
  4. vitamin C [Concomitant]
  5. aloe Vera supplement [Concomitant]
  6. MAGNESIUM [Concomitant]
     Active Substance: MAGNESIUM

REACTIONS (1)
  - Tendonitis [None]

NARRATIVE: CASE EVENT DATE: 20241110
